FAERS Safety Report 9013424 (Version 1)
Quarter: 2013Q1

REPORT INFORMATION
  Report Type: Report from Study
  Country: US (occurrence: US)
  Receive Date: 20130114
  Receipt Date: 20130114
  Transmission Date: 20140127
  Serious: Yes (Hospitalization)
  Sender: FDA-Public Use
  Company Number: US-ASTRAZENECA-2013SE02180

PATIENT
  Age: 70 Year
  Sex: Male
  Weight: 102.1 kg

DRUGS (5)
  1. NEXIUM [Suspect]
     Indication: GASTROOESOPHAGEAL REFLUX DISEASE
     Route: 048
  2. NEXIUM [Suspect]
     Indication: GASTROOESOPHAGEAL REFLUX DISEASE
     Route: 048
     Dates: start: 201201, end: 201301
  3. HYDROCHLOROTHIAZIDE [Concomitant]
  4. IRON SUPPLEMENT [Concomitant]
  5. LISINOPRIL [Concomitant]

REACTIONS (5)
  - Haemorrhage [Unknown]
  - Hypertension [Unknown]
  - Gastritis erosive [Unknown]
  - Drug dose omission [Unknown]
  - Intentional drug misuse [Unknown]
